FAERS Safety Report 5253594-0 (Version None)
Quarter: 2007Q1

REPORT INFORMATION
  Report Type: 
  Country: None (occurrence: None)
  Receive Date: 20061201
  Receipt Date: 20060727
  Transmission Date: 20070707
  Serious: No
  Sender: FDA-Public Use
  Company Number: 2006PV018397

PATIENT
  Age: 72 Year
  Sex: Female

DRUGS (4)
  1. BYETTA [Suspect]
     Indication: DIABETES MELLITUS NON-INSULIN-DEPENDENT
     Dosage: 5 MCG;BID;SC
     Route: 058
     Dates: start: 20060711
  2. AVANDIA [Concomitant]
  3. FORTAMET [Concomitant]
  4. STARLIX [Concomitant]

REACTIONS (1)
  - CONTUSION [None]
